FAERS Safety Report 6967805-4 (Version None)
Quarter: 2010Q3

REPORT INFORMATION
  Report Type: 
  Country: None (occurrence: None)
  Receive Date: 20100907
  Receipt Date: 20100825
  Transmission Date: 20110219
  Serious: Yes (Hospitalization, Other)
  Sender: FDA-Public Use
  Company Number: FR-BAYER-201037980GPV

PATIENT
  Age: 87 Year
  Sex: Female

DRUGS (1)
  1. ULTRAVIST 370 [Suspect]
     Indication: COMPUTERISED TOMOGRAM
     Dates: start: 20100801, end: 20100801

REACTIONS (2)
  - ACUTE PULMONARY OEDEMA [None]
  - RESPIRATORY FAILURE [None]
